FAERS Safety Report 23103930 (Version 1)
Quarter: 2023Q4

REPORT INFORMATION
  Report Type: Spontaneous
  Country: CA (occurrence: CA)
  Receive Date: 20231025
  Receipt Date: 20231025
  Transmission Date: 20240110
  Serious: Yes (Other)
  Sender: FDA-Public Use
  Company Number: CA-002147023-NVSC2021CA242215

PATIENT
  Age: 52 Year
  Sex: Female

DRUGS (4)
  1. FULVESTRANT [Suspect]
     Active Substance: FULVESTRANT
     Indication: Product used for unknown indication
     Dosage: UNK
     Route: 065
     Dates: start: 20211008
  2. PIQRAY [Suspect]
     Active Substance: ALPELISIB
     Dosage: 150 MG, QD
     Route: 048
  3. PIQRAY [Suspect]
     Active Substance: ALPELISIB
     Dosage: 300 MG, QD
     Route: 048
  4. PIQRAY [Suspect]
     Active Substance: ALPELISIB
     Indication: Breast cancer metastatic
     Dosage: UNK
     Route: 048
     Dates: start: 20211008

REACTIONS (16)
  - Breast cancer metastatic [Unknown]
  - Malignant neoplasm progression [Unknown]
  - Dyspepsia [Unknown]
  - Nausea [Unknown]
  - Abdominal distension [Unknown]
  - Decreased appetite [Unknown]
  - Dizziness [Unknown]
  - Fatigue [Unknown]
  - Paraesthesia oral [Unknown]
  - Oral discomfort [Unknown]
  - Injection site urticaria [Unknown]
  - Hyperglycaemia [Unknown]
  - Injection site pruritus [Unknown]
  - Headache [Unknown]
  - Rash [Unknown]
  - Off label use [Unknown]

NARRATIVE: CASE EVENT DATE: 20211010
